FAERS Safety Report 10086852 (Version 4)
Quarter: 2018Q4

REPORT INFORMATION
  Report Type: Report from Study
  Country: US (occurrence: US)
  Receive Date: 20140418
  Receipt Date: 20181219
  Transmission Date: 20190204
  Serious: Yes (Other)
  Sender: FDA-Public Use
  Company Number: US-TEVA-476809USA

PATIENT
  Age: 27 Year
  Sex: Female

DRUGS (6)
  1. CLARAVIS [Suspect]
     Active Substance: ISOTRETINOIN
     Dates: start: 20070405
  2. MACROBID [Concomitant]
     Active Substance: NITROFURANTOIN\NITROFURANTOIN MONOHYDRATE
     Indication: URINARY TRACT INFECTION
  3. BIRTH CONTROL PILLS [Concomitant]
     Active Substance: UNSPECIFIED INGREDIENT
  4. CLARAVIS [Suspect]
     Active Substance: ISOTRETINOIN
     Dates: start: 20101022
  5. CLARAVIS [Suspect]
     Active Substance: ISOTRETINOIN
     Dosage: 3.3333 MILLIGRAM DAILY;
     Dates: start: 20130517, end: 20140404
  6. CLARAVIS [Suspect]
     Active Substance: ISOTRETINOIN
     Dates: start: 20120114

REACTIONS (2)
  - Maternal exposure during pregnancy [Unknown]
  - Unintended pregnancy [Recovered/Resolved]

NARRATIVE: CASE EVENT DATE: 20140324
